FAERS Safety Report 8220601-2 (Version None)
Quarter: 2012Q1

REPORT INFORMATION
  Report Type: 
  Country: None (occurrence: None)
  Receive Date: 20120320
  Receipt Date: 20120314
  Transmission Date: 20120608
  Serious: Yes (Death)
  Sender: FDA-Public Use
  Company Number: US-CELGENEUS-163-21880-12031782

PATIENT
  Sex: Female

DRUGS (13)
  1. FERROUS FUM [Concomitant]
     Dosage: 324 MILLIGRAM
     Route: 048
  2. OMEPRAZOLE [Concomitant]
     Dosage: 10 MILLIGRAM
     Route: 048
  3. COUMADIN [Concomitant]
     Dosage: 1 MILLIGRAM
     Route: 048
  4. LASIX [Concomitant]
     Dosage: 20 MILLIGRAM
     Route: 048
  5. POTASSIUM [Concomitant]
     Route: 048
  6. ZOLPIDEM [Concomitant]
     Dosage: 10 MILLIGRAM
     Route: 048
  7. PRADAXA [Concomitant]
     Dosage: 75 MILLIGRAM
     Route: 048
  8. ALBUTEROL [Concomitant]
     Dosage: 4 MILLIGRAM
     Route: 048
  9. CAPTOPRIL [Concomitant]
     Dosage: 12.5 MILLIGRAM
     Route: 048
  10. REVLIMID [Suspect]
     Indication: MULTIPLE MYELOMA
     Dosage: 15 MILLIGRAM
     Route: 048
     Dates: start: 20100630
  11. LEXAPRO [Concomitant]
     Dosage: 5 MILLIGRAM
     Route: 048
  12. PREDNISONE [Concomitant]
     Dosage: 1 MILLIGRAM
     Route: 048
  13. METOPROLOL SUCCINATE [Concomitant]
     Dosage: 25 MILLIGRAM
     Route: 048

REACTIONS (1)
  - DEATH [None]
